FAERS Safety Report 15408993 (Version 1)
Quarter: 2018Q3

REPORT INFORMATION
  Report Type: Spontaneous
  Country: US (occurrence: US)
  Receive Date: 20180920
  Receipt Date: 20180920
  Transmission Date: 20181010
  Serious: Yes (Other)
  Sender: FDA-Public Use
  Company Number: US-CLOVIS ONCOLOGY-CLO-2018-001250

PATIENT
  Age: 58 Year
  Sex: Female

DRUGS (3)
  1. SLO?MAG [Concomitant]
     Indication: HYPOMAGNESAEMIA
     Dosage: UNK
  2. LEVOTHYROXINE. [Concomitant]
     Active Substance: LEVOTHYROXINE
     Indication: HYPOTHYROIDISM
     Dosage: UNK
  3. RUBRACA [Suspect]
     Active Substance: RUCAPARIB CAMSYLATE
     Indication: OVARIAN CANCER
     Dosage: 600 MG, BID
     Dates: start: 20180901

REACTIONS (7)
  - Dysgeusia [Unknown]
  - Postoperative wound infection [Unknown]
  - Diarrhoea [Unknown]
  - Wound dehiscence [Not Recovered/Not Resolved]
  - Wound secretion [Not Recovered/Not Resolved]
  - Thinking abnormal [Unknown]
  - Amnesia [Unknown]

NARRATIVE: CASE EVENT DATE: 201809
